FAERS Safety Report 6273822-2 (Version None)
Quarter: 2009Q3

REPORT INFORMATION
  Report Type: 
  Country: None (occurrence: None)
  Receive Date: 20090716
  Receipt Date: 20090709
  Transmission Date: 20100115
  Serious: Yes (Hospitalization)
  Sender: FDA-Public Use
  Company Number: ADR5832009(ARROW LOG NO. 2007AG0167)

PATIENT
  Sex: Male

DRUGS (1)
  1. CITALOPRAM HYDROBROMIDE [Suspect]
     Indication: DEPRESSION
     Dosage: 20 MG, ORAL
     Route: 048
     Dates: start: 20071204

REACTIONS (4)
  - APNOEA [None]
  - ASTHENIA [None]
  - CONGENITAL ANOMALY [None]
  - PALLOR [None]
